FAERS Safety Report 9265097 (Version 4)
Quarter: 2013Q3

REPORT INFORMATION
  Report Type: Spontaneous
  Country: US (occurrence: US)
  Receive Date: 20130501
  Receipt Date: 20130722
  Transmission Date: 20140515
  Serious: No
  Sender: FDA-Public Use
  Company Number: US-PFIZER INC-2013135018

PATIENT
  Age: 64 Year
  Sex: Female
  Weight: 60.32 kg

DRUGS (5)
  1. SUTENT [Suspect]
     Indication: THYROID CANCER METASTATIC
     Dosage: 1 CAPSULE OF 12.5 MG X2 TIMES A DAY (25 MG DAILY)
     Route: 048
     Dates: start: 20130424, end: 20130603
  2. ZOLOFT [Suspect]
     Indication: THYROID CANCER METASTATIC
     Dosage: 75 MG, 1X/DAY
     Dates: start: 201209
  3. SYNTHROID [Concomitant]
     Indication: THYROID DISORDER
     Dosage: 1 MG, 1X/DAY
     Dates: start: 2005
  4. LUNESTA [Concomitant]
     Dosage: UNK
  5. DEXAMETHASONE [Concomitant]
     Dosage: UNK

REACTIONS (9)
  - Epistaxis [Not Recovered/Not Resolved]
  - Dry mouth [Not Recovered/Not Resolved]
  - Tremor [Not Recovered/Not Resolved]
  - Stomatitis [Unknown]
  - Tongue ulceration [Unknown]
  - Oral pain [Unknown]
  - Chromaturia [Unknown]
  - Fatigue [Unknown]
  - Off label use [Unknown]
